FAERS Safety Report 19990564 (Version 1)
Quarter: 2021Q4

REPORT INFORMATION
  Report Type: Spontaneous
  Country: US (occurrence: US)
  Receive Date: 20211024
  Receipt Date: 20211024
  Transmission Date: 20220303
  Serious: Yes (Disabling)
  Sender: FDA-Public Use
  Company Number: None

PATIENT
  Age: 45 Year
  Sex: Female
  Weight: 114.75 kg

DRUGS (1)
  1. HIBICLENS [Suspect]
     Active Substance: CHLORHEXIDINE GLUCONATE
     Indication: Infection prophylaxis
     Dosage: ?          OTHER FREQUENCY:PRIOR TO PROCEDURE;
     Route: 061
     Dates: start: 20210401, end: 20211023

REACTIONS (1)
  - Skin reaction [None]

NARRATIVE: CASE EVENT DATE: 20211011
